FAERS Safety Report 15146191 (Version 1)
Quarter: 2018Q3

REPORT INFORMATION
  Report Type: Spontaneous
  Country: US (occurrence: US)
  Receive Date: 20180714
  Receipt Date: 20180714
  Transmission Date: 20181010
  Serious: No
  Sender: FDA-Public Use
  Company Number: US-ASTRAZENECA-2018SE82004

PATIENT
  Sex: Female

DRUGS (1)
  1. BYDUREON BCISE [Suspect]
     Active Substance: EXENATIDE
     Indication: BLOOD GLUCOSE DECREASED
     Route: 065

REACTIONS (3)
  - Injection site mass [Not Recovered/Not Resolved]
  - Drug ineffective [Unknown]
  - Intentional product misuse [Unknown]
